FAERS Safety Report 4897952-2 (Version None)
Quarter: 2006Q1

REPORT INFORMATION
  Report Type: 
  Country: None (occurrence: None)
  Receive Date: 20060130
  Receipt Date: 20060112
  Transmission Date: 20060701
  Serious: Yes (Disabling)
  Sender: FDA-Public Use
  Company Number: 220463

PATIENT
  Age: 50 Year
  Sex: Male
  Weight: 69 kg

DRUGS (1)
  1. AVASTIN [Suspect]
     Indication: RENAL CELL CARCINOMA STAGE UNSPECIFIED
     Dosage: 10 MG/KG, INTRAVENOUS
     Route: 042
     Dates: start: 20051004, end: 20051004

REACTIONS (3)
  - ARTERIAL THROMBOSIS [None]
  - GASTROINTESTINAL NECROSIS [None]
  - INTESTINAL INFARCTION [None]
